FAERS Safety Report 8312562-2 (Version None)
Quarter: 2012Q2

REPORT INFORMATION
  Report Type: 
  Country: None (occurrence: None)
  Receive Date: 20120424
  Receipt Date: 20120424
  Transmission Date: 20120825
  Serious: Yes (Other)
  Sender: FDA-Public Use
  Company Number: None

PATIENT
  Sex: Female

DRUGS (2)
  1. LEVOTHROID [Suspect]
  2. SYNTHROID [Suspect]
     Indication: AUTOIMMUNE THYROIDITIS
     Dosage: 0.150 MG 1 PER DAY ?

REACTIONS (4)
  - DRUG LEVEL FLUCTUATING [None]
  - PRODUCT FORMULATION ISSUE [None]
  - ARRHYTHMIA [None]
  - PRODUCT QUALITY ISSUE [None]
